FAERS Safety Report 19507072 (Version 1)
Quarter: 2021Q3

REPORT INFORMATION
  Report Type: Spontaneous
  Country: US (occurrence: US)
  Receive Date: 20210708
  Receipt Date: 20210708
  Transmission Date: 20211014
  Serious: No
  Sender: FDA-Public Use
  Company Number: None

PATIENT
  Age: 56 Year
  Sex: Female

DRUGS (1)
  1. AFINITOR [Suspect]
     Active Substance: EVEROLIMUS
     Route: 048
     Dates: start: 202006, end: 202106

REACTIONS (4)
  - Peripheral swelling [None]
  - Blood glucose increased [None]
  - Hepatic enzyme increased [None]
  - Pneumonia [None]

NARRATIVE: CASE EVENT DATE: 20210501
